FAERS Safety Report 16386047 (Version 5)
Quarter: 2019Q3

REPORT INFORMATION
  Report Type: Report from Study
  Country: US (occurrence: US)
  Receive Date: 20190603
  Receipt Date: 20190829
  Transmission Date: 20191004
  Serious: Yes (Other)
  Sender: FDA-Public Use
  Company Number: US-ACTELION-A-US2019-187973

PATIENT
  Sex: Male
  Weight: 57.6 kg

DRUGS (5)
  1. UPTRAVI [Suspect]
     Active Substance: SELEXIPAG
     Dosage: 1200 MCG, QD
     Route: 048
  2. UPTRAVI [Suspect]
     Active Substance: SELEXIPAG
     Dosage: 1000 MCG, QD
     Route: 048
  3. UPTRAVI [Suspect]
     Active Substance: SELEXIPAG
     Dosage: 1000 MCG IN AM, 1200 MCG IN PM
     Route: 048
     Dates: start: 20190607
  4. UPTRAVI [Suspect]
     Active Substance: SELEXIPAG
     Dosage: 800 MCG, BID
     Route: 048
  5. UPTRAVI [Suspect]
     Active Substance: SELEXIPAG
     Indication: PULMONARY ARTERIAL HYPERTENSION
     Dosage: 600 MCG, BID
     Route: 048

REACTIONS (19)
  - Diarrhoea [Unknown]
  - Gait disturbance [Unknown]
  - Pain in extremity [Unknown]
  - Condition aggravated [Unknown]
  - Adverse drug reaction [Unknown]
  - Heart rate increased [Unknown]
  - Hepatitis C [Unknown]
  - Dizziness [Unknown]
  - Dyspnoea [Unknown]
  - Pain [Unknown]
  - Asthenia [Unknown]
  - Chest pain [Recovered/Resolved]
  - Hypotension [Unknown]
  - Headache [Unknown]
  - Nasopharyngitis [Unknown]
  - Abdominal pain upper [Unknown]
  - Fatigue [Unknown]
  - Quality of life decreased [Unknown]
  - Therapy non-responder [Unknown]
